FAERS Safety Report 21967859 (Version 1)
Quarter: 2023Q1

REPORT INFORMATION
  Report Type: Spontaneous
  Country: FR (occurrence: FR)
  Receive Date: 20230208
  Receipt Date: 20230208
  Transmission Date: 20230418
  Serious: Yes (Other)
  Sender: FDA-Public Use
  Company Number: None

PATIENT
  Age: 20 Year
  Sex: Female

DRUGS (4)
  1. TRAMADOL [Suspect]
     Active Substance: TRAMADOL
     Indication: Product used for unknown indication
     Dosage: 3 DF, 3 TABLETS PER INTAKE, MANAGES TO OBTAIN THEM
     Route: 048
     Dates: start: 2021
  2. ZOPICLONE [Suspect]
     Active Substance: ZOPICLONE
     Indication: Product used for unknown indication
     Dosage: 2 DOSAGE FORM, 2 TABLETS INSTEAD OF 1, UP TO 6/DAY
     Route: 048
     Dates: start: 2022
  3. CODEINE HYDROCHLORIDE [Suspect]
     Active Substance: CODEINE HYDROCHLORIDE
     Indication: Back pain
     Dosage: UNK
     Route: 048
     Dates: start: 2022
  4. OXAZEPAM [Suspect]
     Active Substance: OXAZEPAM
     Indication: Product used for unknown indication
     Dosage: UNK UNK, QD, UP TO 6 TABLETS PER DAY
     Route: 048
     Dates: start: 2022

REACTIONS (2)
  - Drug dependence [Recovering/Resolving]
  - Intentional product misuse [Recovering/Resolving]

NARRATIVE: CASE EVENT DATE: 20220101
